FAERS Safety Report 24786314 (Version 3)
Quarter: 2025Q2

REPORT INFORMATION
  Report Type: Spontaneous
  Country: PK (occurrence: PK)
  Receive Date: 20241229
  Receipt Date: 20250508
  Transmission Date: 20250717
  Serious: Yes (Hospitalization)
  Sender: NOVO NORDISK
  Company Number: PK-NOVOPROD-1339103

PATIENT
  Age: 60 Year
  Sex: Male

DRUGS (1)
  1. OZEMPIC [Suspect]
     Active Substance: SEMAGLUTIDE
     Indication: Diabetes mellitus
     Dates: start: 20241210, end: 20241210

REACTIONS (8)
  - Hypotension [Unknown]
  - White blood cell count increased [Unknown]
  - C-reactive protein increased [Unknown]
  - Burning sensation [Unknown]
  - Blood glucose increased [Unknown]
  - Heart rate increased [Unknown]
  - Nausea [Unknown]
  - Vomiting [Unknown]
